FAERS Safety Report 17315434 (Version 1)
Quarter: 2020Q1

REPORT INFORMATION
  Report Type: Spontaneous
  Country: BE (occurrence: BE)
  Receive Date: 20200124
  Receipt Date: 20200124
  Transmission Date: 20200409
  Serious: Yes (Other)
  Sender: FDA-Public Use
  Company Number: BE-JNJFOC-20200135870

PATIENT
  Age: 65 Year
  Sex: Male

DRUGS (2)
  1. REMICADE [Suspect]
     Active Substance: INFLIXIMAB
     Indication: SPONDYLITIS
     Route: 042
     Dates: start: 2004
  2. NEULASTA [Suspect]
     Active Substance: PEGFILGRASTIM
     Indication: NEUROENDOCRINE TUMOUR
     Route: 065

REACTIONS (8)
  - Red blood cell abnormality [Unknown]
  - Renal impairment [Unknown]
  - Fatigue [Unknown]
  - Product use issue [Unknown]
  - Neuroendocrine tumour [Unknown]
  - Lupus-like syndrome [Unknown]
  - Lymphocyte count increased [Unknown]
  - Off label use [Unknown]

NARRATIVE: CASE EVENT DATE: 2004
